FAERS Safety Report 18532425 (Version 1)
Quarter: 2020Q4

REPORT INFORMATION
  Report Type: Spontaneous
  Country: US (occurrence: US)
  Receive Date: 20201123
  Receipt Date: 20201123
  Transmission Date: 20210114
  Serious: No
  Sender: FDA-Public Use
  Company Number: US-AUROBINDO-AUR-APL-2019-104638

PATIENT
  Sex: Female
  Weight: 76 kg

DRUGS (5)
  1. ELIQUIS [Concomitant]
     Active Substance: APIXABAN
     Indication: ANTICOAGULANT THERAPY
     Dosage: UNK, TWO TIMES A DAY
     Route: 065
     Dates: start: 20190918
  2. LOSARTAN POTASSIUM / HYDROCHLOROTHIAZIDE 100MG +25 MG [Suspect]
     Active Substance: HYDROCHLOROTHIAZIDE\LOSARTAN POTASSIUM
     Indication: PRODUCT USED FOR UNKNOWN INDICATION
     Dosage: UNK, ONCE A DAY
     Route: 065
  3. DEXILANT [Concomitant]
     Active Substance: DEXLANSOPRAZOLE
     Indication: GASTROOESOPHAGEAL REFLUX DISEASE
     Dosage: UNK, ONE TIME A DAY
     Route: 065
     Dates: start: 20190903
  4. MAGNESIUM OXIDE. [Concomitant]
     Active Substance: MAGNESIUM OXIDE
     Indication: PRODUCT USED FOR UNKNOWN INDICATION
     Dosage: UNK, ONE TIME A DAY
     Route: 065
     Dates: start: 20190823
  5. ATORVASTATIN [Concomitant]
     Active Substance: ATORVASTATIN
     Indication: BLOOD CHOLESTEROL
     Dosage: UNK, ONE TIME A DAY
     Route: 065
     Dates: start: 20190601

REACTIONS (3)
  - Chest pain [Unknown]
  - Peripheral swelling [Recovered/Resolved]
  - Alopecia [Recovered/Resolved]
